FAERS Safety Report 7141221-7 (Version None)
Quarter: 2010Q4

REPORT INFORMATION
  Report Type: 
  Country: None (occurrence: None)
  Receive Date: 20101203
  Receipt Date: 20101203
  Transmission Date: 20110411
  Serious: Yes (Hospitalization)
  Sender: FDA-Public Use
  Company Number: None

PATIENT
  Weight: 14.7 kg

DRUGS (1)
  1. PEG-ASPARAGINASE UNKNOWN UNKNOWN [Suspect]
     Indication: ACUTE LYMPHOCYTIC LEUKAEMIA
     Dosage: 1600 UNITS ONCE IM
     Route: 030
     Dates: start: 20101201, end: 20101201

REACTIONS (1)
  - ANAPHYLACTIC REACTION [None]
